FAERS Safety Report 22381646 (Version 1)
Quarter: 2023Q2

REPORT INFORMATION
  Report Type: Spontaneous
  Country: CN (occurrence: CN)
  Receive Date: 20230530
  Receipt Date: 20230530
  Transmission Date: 20230721
  Serious: Yes (Other)
  Sender: FDA-Public Use
  Company Number: None

PATIENT
  Age: 22 Year
  Sex: Male
  Weight: 62 kg

DRUGS (4)
  1. CYCLOPHOSPHAMIDE [Suspect]
     Active Substance: CYCLOPHOSPHAMIDE
     Indication: Acute leukaemia
     Dosage: 1.2 G, QD, DILUTED WITH 500 ML OF 0.9% SODIUM CHLORIDE (INTRA-PUMP INJECTION)
     Route: 050
     Dates: start: 20230411, end: 20230411
  2. SODIUM CHLORIDE [Suspect]
     Active Substance: SODIUM CHLORIDE
     Indication: Medication dilution
     Dosage: 0.9% 500 ML, QD, USED TO DILUTE 1.2 G OF CYCLOPHOSPHAMIDE (INTRA-PUMP INJECTION)
     Route: 050
     Dates: start: 20230411, end: 20230411
  3. DEXTROSE [Suspect]
     Active Substance: DEXTROSE\DEXTROSE MONOHYDRATE
     Indication: Medication dilution
     Dosage: 5% 500 ML, QD, USED TO DILUTE 0.13 G OF CYTARABINE (INTRA-PUMP INJECTION)
     Route: 050
     Dates: start: 20230411, end: 20230415
  4. CYTARABINE [Suspect]
     Active Substance: CYTARABINE
     Indication: Acute leukaemia
     Dosage: 0.13 G, QD, DILUTED WITH 500 ML OF 5% GLUCOSE (INTRA-PUMP INJECTION)
     Route: 050
     Dates: start: 20230411, end: 20230415

REACTIONS (1)
  - Platelet count decreased [Recovering/Resolving]

NARRATIVE: CASE EVENT DATE: 20230425
